FAERS Safety Report 4885100-4 (Version None)
Quarter: 2006Q1

REPORT INFORMATION
  Report Type: 
  Country: None (occurrence: None)
  Receive Date: 20060119
  Receipt Date: 20060112
  Transmission Date: 20060701
  Serious: Yes (Other)
  Sender: FDA-Public Use
  Company Number: US-BRISTOL-MYERS SQUIBB COMPANY-13249974

PATIENT
  Sex: Female

DRUGS (1)
  1. ERBITUX [Suspect]

REACTIONS (2)
  - HEADACHE [None]
  - HYPERTENSION [None]
